FAERS Safety Report 14540350 (Version 1)
Quarter: 2018Q1

REPORT INFORMATION
  Report Type: Spontaneous
  Country: GB (occurrence: GB)
  Receive Date: 20180216
  Receipt Date: 20180216
  Transmission Date: 20180509
  Serious: Yes (Hospitalization)
  Sender: FDA-Public Use
  Company Number: GB-PFIZER INC-2018062981

PATIENT
  Age: 40 Year

DRUGS (2)
  1. SERTRALINE HCL [Suspect]
     Active Substance: SERTRALINE HYDROCHLORIDE
     Dosage: 50 MG, 1X/DAY
     Dates: start: 20170920
  2. ZOPICLONE [Concomitant]
     Active Substance: ZOPICLONE
     Dosage: 3.75 MG, 1X/DAY
     Dates: start: 20170901, end: 20170908

REACTIONS (12)
  - Chest pain [Unknown]
  - Dizziness [Unknown]
  - Hyperhidrosis [Unknown]
  - Tremor [Unknown]
  - Headache [Unknown]
  - Muscular weakness [Unknown]
  - Hot flush [Unknown]
  - Decreased appetite [Unknown]
  - Vomiting [Unknown]
  - Confusional state [Unknown]
  - Speech disorder [Unknown]
  - Memory impairment [Unknown]

NARRATIVE: CASE EVENT DATE: 20170920
